FAERS Safety Report 12173084 (Version 3)
Quarter: 2017Q1

REPORT INFORMATION
  Report Type: Spontaneous
  Country: US (occurrence: US)
  Receive Date: 20160311
  Receipt Date: 20170228
  Transmission Date: 20170428
  Serious: Yes (Other)
  Sender: FDA-Public Use
  Company Number: US-BAYER-2016-048434

PATIENT
  Age: 27 Year
  Sex: Female

DRUGS (1)
  1. MIRENA [Suspect]
     Active Substance: LEVONORGESTREL
     Indication: CONTRACEPTION
     Dosage: 20 MCG/24HR, CONT
     Route: 015
     Dates: start: 20151214, end: 20160309

REACTIONS (8)
  - Dyspareunia [None]
  - Genital haemorrhage [None]
  - Drug ineffective [None]
  - Abdominal pain lower [None]
  - Vaginal odour [None]
  - Feeling abnormal [Unknown]
  - Pregnancy with contraceptive device [Not Recovered/Not Resolved]
  - Vaginal discharge [None]

NARRATIVE: CASE EVENT DATE: 20160309
